FAERS Safety Report 9895441 (Version 1)
Quarter: 2014Q1

REPORT INFORMATION
  Report Type: Spontaneous
  Country: US (occurrence: US)
  Receive Date: 20140213
  Receipt Date: 20140213
  Transmission Date: 20141002
  Serious: No
  Sender: FDA-Public Use
  Company Number: US-BRISTOL-MYERS SQUIBB COMPANY-17370644

PATIENT
  Age: 53 Year
  Sex: Male
  Weight: 108.84 kg

DRUGS (7)
  1. ABATACEPT SUBQ INJECTION 125MG/ML [Suspect]
     Indication: RHEUMATOID ARTHRITIS
     Route: 058
     Dates: start: 20120626, end: 20120915
  2. CIMZIA [Concomitant]
  3. DICLOFENAC [Concomitant]
  4. FOLIC ACID [Concomitant]
  5. HYDROCODONE [Concomitant]
  6. LEFLUNOMIDE [Concomitant]
  7. PREDNISONE [Concomitant]

REACTIONS (2)
  - Drug ineffective [Unknown]
  - Cough [Unknown]
